FAERS Safety Report 25279672 (Version 1)
Quarter: 2025Q2

REPORT INFORMATION
  Report Type: Spontaneous
  Country: GB (occurrence: GB)
  Receive Date: 20250507
  Receipt Date: 20250507
  Transmission Date: 20250716
  Serious: Yes (Other)
  Sender: MYLAN
  Company Number: None

PATIENT
  Age: 55 Year

DRUGS (15)
  1. METFORMIN [Suspect]
     Active Substance: METFORMIN HYDROCHLORIDE
     Indication: Product used for unknown indication
  2. ACETAMINOPHEN [Concomitant]
     Active Substance: ACETAMINOPHEN
  3. SERTRALINE [Concomitant]
     Active Substance: SERTRALINE HYDROCHLORIDE
  4. DOCUSATE [Concomitant]
     Active Substance: DOCUSATE
  5. FUROSEMIDE [Concomitant]
     Active Substance: FUROSEMIDE
  6. PREGABALIN [Concomitant]
     Active Substance: PREGABALIN
  7. GLICLAZIDE [Concomitant]
     Active Substance: GLICLAZIDE
  8. ALBUTEROL [Concomitant]
     Active Substance: ALBUTEROL
  9. FERROUS FUMARATE [Concomitant]
     Active Substance: FERROUS FUMARATE
  10. MEBEVERINE [Concomitant]
     Active Substance: MEBEVERINE
  11. INSULIN ASPART [Concomitant]
     Active Substance: INSULIN ASPART
  12. RAMIPRIL [Concomitant]
     Active Substance: RAMIPRIL
  13. SITAGLIPTIN [Concomitant]
     Active Substance: SITAGLIPTIN
  14. SIMVASTATIN [Concomitant]
     Active Substance: SIMVASTATIN
  15. MOMETASONE [Concomitant]
     Active Substance: MOMETASONE

REACTIONS (1)
  - Anaemia vitamin B12 deficiency [Unknown]
